FAERS Safety Report 21799995 (Version 1)
Quarter: 2022Q4

REPORT INFORMATION
  Report Type: Spontaneous
  Country: US (occurrence: US)
  Receive Date: 20221230
  Receipt Date: 20221230
  Transmission Date: 20230112
  Serious: Yes (Hospitalization)
  Sender: FDA-Public Use
  Company Number: US-drreddys-SPO/USA/22/0158997

PATIENT
  Age: 67 Year
  Sex: Female

DRUGS (19)
  1. LENALIDOMIDE [Suspect]
     Active Substance: LENALIDOMIDE
     Indication: Plasma cell myeloma
     Dosage: TAKE 1 CAPSULE BY MOUTH WHOLE WITH WATER, WITH OR WITHOUT FOOD AT APPROXIMATELY THE SAME TIME DAILY
     Route: 048
     Dates: start: 20221031
  2. LENALIDOMIDE [Suspect]
     Active Substance: LENALIDOMIDE
     Dosage: TAKE 1 WHOLE CAPSULE BY MOUTH WITH WATER W/ OR W/O FOOD AT THE SAME TIME EVERY DAY
     Route: 048
     Dates: start: 20220217
  3. MACROBID [Suspect]
     Active Substance: NITROFURANTOIN\NITROFURANTOIN MONOHYDRATE
     Indication: Urinary tract infection
  4. AUGMENTIN [Suspect]
     Active Substance: AMOXICILLIN\CLAVULANATE POTASSIUM
     Indication: Urinary tract infection
  5. METOPROLOL SUCCINATE [Concomitant]
     Active Substance: METOPROLOL SUCCINATE
     Indication: Product used for unknown indication
  6. DARZALEX SOL 400MG/20ML [Concomitant]
     Indication: Product used for unknown indication
     Dosage: 400MG/20ML
  7. METFORMIN [Concomitant]
     Active Substance: METFORMIN HYDROCHLORIDE
     Indication: Product used for unknown indication
  8. VITAMIN B CO TAB [Concomitant]
     Indication: Product used for unknown indication
  9. MULTIVITAMIN TAB [Concomitant]
     Indication: Product used for unknown indication
  10. CLARITIN [Concomitant]
     Active Substance: LORATADINE
     Indication: Product used for unknown indication
  11. ZYRTEC [Concomitant]
     Active Substance: CETIRIZINE HYDROCHLORIDE
     Indication: Product used for unknown indication
  12. CALCIUM 500 TAB 500-600M [Concomitant]
     Indication: Product used for unknown indication
  13. TYLENOL 8 HO TBC 650MG [Concomitant]
     Indication: Product used for unknown indication
  14. ZINC TAB 100MG [Concomitant]
     Indication: Product used for unknown indication
  15. ZOLEDRONIC ACID [Concomitant]
     Active Substance: ZOLEDRONIC ACID
     Indication: Product used for unknown indication
     Dosage: 4MG/5ML
  16. ACYCLOVIR [Concomitant]
     Active Substance: ACYCLOVIR
     Indication: Product used for unknown indication
  17. DEXAMETHASONE TAB 4MG [Concomitant]
     Indication: Product used for unknown indication
  18. ELIQUIS [Concomitant]
     Active Substance: APIXABAN
     Indication: Product used for unknown indication
  19. NOVOLOG SOL 100UNIT/ML [Concomitant]
     Indication: Product used for unknown indication
     Dosage: 100UNIT/ML

REACTIONS (4)
  - Adenoiditis [Not Recovered/Not Resolved]
  - Upper respiratory tract infection [Not Recovered/Not Resolved]
  - Renal failure [Not Recovered/Not Resolved]
  - Product dose omission issue [Unknown]
